FAERS Safety Report 4767438-4 (Version None)
Quarter: 2005Q3

REPORT INFORMATION
  Report Type: 
  Country: None (occurrence: None)
  Receive Date: 20050913
  Receipt Date: 20050609
  Transmission Date: 20060218
  Serious: Yes (Death, Hospitalization)
  Sender: FDA-Public Use
  Company Number: US-MERCK-0506USA01861

PATIENT
  Age: 57 Year
  Sex: Male
  Weight: 109 kg

DRUGS (6)
  1. VIOXX [Suspect]
     Indication: BACK PAIN
     Route: 048
     Dates: start: 20021101, end: 20030501
  2. VIOXX [Suspect]
     Route: 048
     Dates: start: 20010101, end: 20021101
  3. OXYCONTIN [Concomitant]
     Route: 065
     Dates: start: 20010101, end: 20030501
  4. OXYCONTIN [Concomitant]
     Route: 065
     Dates: start: 20010101, end: 20030501
  5. AMBIEN [Concomitant]
     Route: 065
  6. OXYIR [Concomitant]
     Route: 065
     Dates: start: 20010101, end: 20030501

REACTIONS (10)
  - ANGIOPATHY [None]
  - CHEST PAIN [None]
  - DYSPEPSIA [None]
  - DYSPNOEA [None]
  - FLATULENCE [None]
  - GASTROOESOPHAGEAL REFLUX DISEASE [None]
  - INTESTINAL FUNCTIONAL DISORDER [None]
  - MYOCARDIAL INFARCTION [None]
  - SLEEP APNOEA SYNDROME [None]
  - THROMBOSIS [None]
